FAERS Safety Report 4522613-9 (Version None)
Quarter: 2004Q4

REPORT INFORMATION
  Report Type: 
  Country: None (occurrence: None)
  Receive Date: 20041207
  Receipt Date: 20041123
  Transmission Date: 20050328
  Serious: Yes (Other)
  Sender: FDA-Public Use
  Company Number: 2004-11-1429

PATIENT
  Sex: Female

DRUGS (1)
  1. CLARATYNE (LORATADINE) TABLETS [Suspect]
     Dosage: 1 QD ORAL
     Route: 048
     Dates: start: 20041122, end: 20041122

REACTIONS (4)
  - CIRCULATORY COLLAPSE [None]
  - DIZZINESS [None]
  - SOMNOLENCE [None]
  - VISION BLURRED [None]
